FAERS Safety Report 9513416 (Version 1)
Quarter: 2013Q3

REPORT INFORMATION
  Report Type: Not Available
  Country: US (occurrence: US)
  Receive Date: 20130910
  Receipt Date: 20130910
  Transmission Date: 20140515
  Serious: Yes (Other)
  Sender: FDA-Public Use
  Company Number: US-TARO-2012P1055969

PATIENT
  Age: 87 Year
  Sex: Female
  Weight: 54.43 kg

DRUGS (3)
  1. WARFARIN SODIUM TABLETS USP 1MG [Suspect]
     Route: 048
     Dates: start: 201110
  2. WARFARIN SODIUM TABLETS USP 1MG [Suspect]
     Route: 048
     Dates: start: 201110
  3. LEVOTHROID [Concomitant]

REACTIONS (4)
  - Blue toe syndrome [Not Recovered/Not Resolved]
  - International normalised ratio fluctuation [Unknown]
  - Local swelling [Not Recovered/Not Resolved]
  - Pain in extremity [Not Recovered/Not Resolved]
